FAERS Safety Report 19841284 (Version 1)
Quarter: 2021Q3

REPORT INFORMATION
  Report Type: Report from Study
  Country: IT (occurrence: IT)
  Receive Date: 20210915
  Receipt Date: 20210915
  Transmission Date: 20211014
  Serious: Yes (Hospitalization, Other)
  Sender: FDA-Public Use
  Company Number: IT-INCYTE CORPORATION-2021IN008370

PATIENT

DRUGS (2)
  1. NAVITOCLAX [Suspect]
     Active Substance: NAVITOCLAX
     Indication: PRIMARY MYELOFIBROSIS
     Dosage: (200 MG,1 IN 1 D)
     Route: 048
     Dates: start: 20210826
  2. JAKAVI [Suspect]
     Active Substance: RUXOLITINIB
     Indication: PRIMARY MYELOFIBROSIS
     Dosage: 10 MG, BID
     Route: 048
     Dates: start: 20210826

REACTIONS (13)
  - Pyrexia [Unknown]
  - Blood uric acid increased [Unknown]
  - Asthenia [Unknown]
  - Hypokalaemia [Unknown]
  - Dysuria [Unknown]
  - Lithiasis [Unknown]
  - Tumour lysis syndrome [Unknown]
  - Urinary tract infection [Not Recovered/Not Resolved]
  - Acute kidney injury [Unknown]
  - Platelet count decreased [Unknown]
  - Blood phosphorus increased [Recovering/Resolving]
  - Urosepsis [Unknown]
  - Hypocalcaemia [Unknown]

NARRATIVE: CASE EVENT DATE: 20210830
